FAERS Safety Report 8898518 (Version 2)
Quarter: 2012Q4

REPORT INFORMATION
  Report Type: 
  Country: US (occurrence: US)
  Receive Date: 20121109
  Receipt Date: 20121115
  Transmission Date: 20130627
  Serious: No
  Sender: FDA-Public Use
  Company Number: US-B.I. PHARMACEUTICALS,INC./RIDGEFIELD-2012-BP-27365BP

PATIENT
  Sex: Female
  Weight: 68 kg

DRUGS (6)
  1. SPIRIVA [Suspect]
     Indication: ASTHMA
     Dosage: 18 mcg
     Route: 055
  2. LASIX [Concomitant]
     Dosage: 80 mg
     Route: 048
  3. LUNESTA [Concomitant]
     Indication: SLEEP DISORDER
     Route: 048
  4. DULARA [Concomitant]
     Indication: ASTHMA
     Dosage: 4 puf
     Route: 055
  5. SINGULAIR [Concomitant]
     Route: 048
  6. PLAQUENIL [Concomitant]
     Indication: SYSTEMIC LUPUS ERYTHEMATOSUS
     Dosage: 400 mg
     Route: 048

REACTIONS (2)
  - Cough [Not Recovered/Not Resolved]
  - Product quality issue [Recovered/Resolved]
